FAERS Safety Report 5689088-8 (Version None)
Quarter: 2008Q1

REPORT INFORMATION
  Report Type: 
  Country: None (occurrence: None)
  Receive Date: 20080331
  Receipt Date: 20070521
  Transmission Date: 20080703
  Serious: Yes (Death)
  Sender: FDA-Public Use
  Company Number: FI-ROCHE-499057

PATIENT
  Sex: Female

DRUGS (2)
  1. XELODA [Suspect]
     Indication: COLORECTAL CANCER
     Dosage: DOSE REPORTED AS 1500 MG X2/2WEEKS
     Route: 048
     Dates: start: 20070321, end: 20070404
  2. HYDREX [Concomitant]
     Indication: HYPERTENSION
     Route: 048

REACTIONS (2)
  - DEATH [None]
  - FATIGUE [None]
